FAERS Safety Report 14551704 (Version 2)
Quarter: 2018Q2

REPORT INFORMATION
  Report Type: Other
  Country: DE (occurrence: DE)
  Receive Date: 20180220
  Receipt Date: 20180419
  Transmission Date: 20180711
  Serious: Yes (Other)
  Sender: FDA-Public Use
  Company Number: DE-MACLEODS PHARMACEUTICALS US LTD-MAC2018009920

PATIENT

DRUGS (5)
  1. SILDENAFIL. [Suspect]
     Active Substance: SILDENAFIL
     Indication: PULMONARY HYPERTENSION
     Dosage: UNK, INFUSION OF 1.6 MG/KG/D, INTRAVENOUS SILDENAFIL WAS SWITCHED TO ORAL MEDICATION
     Route: 048
  2. BOSENTAN. [Suspect]
     Active Substance: BOSENTAN
     Indication: CONGENITAL DIAPHRAGMATIC HERNIA
  3. BOSENTAN. [Suspect]
     Active Substance: BOSENTAN
     Indication: PULMONARY HYPERTENSION
     Dosage: UNK
     Route: 065
  4. SILDENAFIL INTRAVENOUS [Suspect]
     Active Substance: SILDENAFIL
     Indication: CONGENITAL DIAPHRAGMATIC HERNIA
     Dosage: 0.4 MG/KG, OVER 3 H,
     Route: 040
  5. SILDENAFIL INTRAVENOUS [Suspect]
     Active Substance: SILDENAFIL
     Indication: PULMONARY HYPERTENSION
     Dosage: 1.6 MG/KG, QD ( INFUSION OF 1.6 MG/KG/D, INTRAVENOUS SILDENAFIL WAS SWITCHED TO ORAL MEDICATION)
     Route: 042

REACTIONS (1)
  - Respiratory failure [Recovering/Resolving]
